FAERS Safety Report 7796598-6 (Version None)
Quarter: 2011Q4

REPORT INFORMATION
  Report Type: 
  Country: None (occurrence: None)
  Receive Date: 20111005
  Receipt Date: 20110922
  Transmission Date: 20120403
  Serious: Yes (Hospitalization)
  Sender: FDA-Public Use
  Company Number: US-ELI_LILLY_AND_COMPANY-US201109008000

PATIENT
  Age: 39 Year
  Sex: Female

DRUGS (2)
  1. CYMBALTA [Suspect]
     Dosage: 120 MG, UNK
  2. CYMBALTA [Suspect]
     Dosage: 60 MG, UNK

REACTIONS (2)
  - SUICIDAL BEHAVIOUR [None]
  - INCOHERENT [None]
